FAERS Safety Report 19078860 (Version 2)
Quarter: 2021Q2

REPORT INFORMATION
  Report Type: Spontaneous
  Country: US (occurrence: US)
  Receive Date: 20210331
  Receipt Date: 20210402
  Transmission Date: 20210717
  Serious: No
  Sender: FDA-Public Use
  Company Number: US-PFIZER INC-2021308436

PATIENT
  Age: 20 Year
  Sex: Female
  Weight: 53.3 kg

DRUGS (2)
  1. SIROLIMUS. [Suspect]
     Active Substance: SIROLIMUS
     Dosage: 3 DF, 2X/DAY
     Dates: start: 202007, end: 202101
  2. SIROLIMUS. [Suspect]
     Active Substance: SIROLIMUS
     Indication: MALFORMATION VENOUS
     Dosage: 4 DF, 2X/DAY

REACTIONS (4)
  - Influenza like illness [Recovered/Resolved]
  - Pyrexia [Unknown]
  - Viral infection [Recovered/Resolved]
  - Off label use [Unknown]

NARRATIVE: CASE EVENT DATE: 202101
